FAERS Safety Report 15180816 (Version 1)
Quarter: 2018Q3

REPORT INFORMATION
  Report Type: Spontaneous
  Country: US (occurrence: US)
  Receive Date: 20180723
  Receipt Date: 20180723
  Transmission Date: 20181010
  Serious: Yes (Hospitalization, Other)
  Sender: FDA-Public Use
  Company Number: US-ROCHE-2156712

PATIENT
  Sex: Female

DRUGS (2)
  1. CLONAZEPAM. [Suspect]
     Active Substance: CLONAZEPAM
     Indication: PRODUCT USED FOR UNKNOWN INDICATION
     Route: 064
  2. METHADONE [Suspect]
     Active Substance: METHADONE HYDROCHLORIDE
     Indication: PRODUCT USED FOR UNKNOWN INDICATION
     Route: 064

REACTIONS (9)
  - Sepsis [Unknown]
  - Hyperlactacidaemia [Unknown]
  - Escherichia urinary tract infection [Unknown]
  - Respiratory tract infection [Recovered/Resolved]
  - Nephrolithiasis [Unknown]
  - Foetal exposure during pregnancy [Unknown]
  - Epileptic encephalopathy [Unknown]
  - Drug withdrawal syndrome neonatal [Unknown]
  - Respiratory failure [Recovered/Resolved]
